FAERS Safety Report 8680460 (Version 4)
Quarter: 2012Q4

REPORT INFORMATION
  Report Type: 
  Country: CA (occurrence: CA)
  Receive Date: 20120724
  Receipt Date: 20121214
  Transmission Date: 20130627
  Serious: Yes (Death, Hospitalization)
  Sender: FDA-Public Use
  Company Number: PHHY2012CA062745

PATIENT
  Age: 47 Year
  Sex: Male

DRUGS (2)
  1. CLOZARIL [Suspect]
     Route: 048
     Dates: start: 20120214, end: 20120612
  2. CLOZARIL [Suspect]
     Dates: start: 20120727

REACTIONS (4)
  - Death [Fatal]
  - Coma [Unknown]
  - Septic shock [Unknown]
  - Pneumonia aspiration [Unknown]
